FAERS Safety Report 4594880-7 (Version None)
Quarter: 2005Q1

REPORT INFORMATION
  Report Type: 
  Country: None (occurrence: None)
  Receive Date: 20050223
  Receipt Date: 20050210
  Transmission Date: 20050727
  Serious: Yes (Hospitalization)
  Sender: FDA-Public Use
  Company Number: 2005028179

PATIENT
  Age: 41 Year
  Sex: Female

DRUGS (1)
  1. ZOLOFT [Suspect]
     Indication: ADJUSTMENT DISORDER
     Dosage: 25 MG (25 MG, 1 IN 1 D), ORAL
     Route: 048
     Dates: start: 20010121

REACTIONS (6)
  - CHEST DISCOMFORT [None]
  - DIZZINESS [None]
  - DRUG DEPENDENCE [None]
  - DYSPNOEA [None]
  - HEART RATE IRREGULAR [None]
  - INSOMNIA [None]
